FAERS Safety Report 15715002 (Version 1)
Quarter: 2018Q4

REPORT INFORMATION
  Report Type: Spontaneous
  Country: US (occurrence: US)
  Receive Date: 20181212
  Receipt Date: 20181212
  Transmission Date: 20190205
  Serious: Yes (Other)
  Sender: FDA-Public Use
  Company Number: US-TEVA-239642USA

PATIENT
  Age: 34 Year
  Sex: Male

DRUGS (5)
  1. CLINDAMYCIN HYDROCHLORIDE CAPSULE [Suspect]
     Active Substance: CLINDAMYCIN HYDROCHLORIDE
     Indication: PAIN
     Dosage: 1200 MILLIGRAM DAILY;
     Route: 065
  2. PHENOXYMETHYLPENICILLIN POTASSIUM [Suspect]
     Active Substance: PENICILLIN V POTASSIUM
     Indication: SWELLING
  3. PHENOXYMETHYLPENICILLIN POTASSIUM [Suspect]
     Active Substance: PENICILLIN V POTASSIUM
     Indication: PAIN
     Route: 065
  4. SULFAMETHOXAZOLE W/TRIMETHOPRIM [Suspect]
     Active Substance: SULFAMETHOXAZOLE\TRIMETHOPRIM
     Route: 065
  5. CLINDAMYCIN HYDROCHLORIDE CAPSULE [Suspect]
     Active Substance: CLINDAMYCIN HYDROCHLORIDE
     Indication: SWELLING

REACTIONS (1)
  - Acute febrile neutrophilic dermatosis [Recovered/Resolved]
